FAERS Safety Report 4705037-0 (Version None)
Quarter: 2005Q3

REPORT INFORMATION
  Report Type: 
  Country: None (occurrence: None)
  Receive Date: 20050701
  Receipt Date: 20050624
  Transmission Date: 20060218
  Serious: Yes (Hospitalization, Disabling, Congenital Anomaly)
  Sender: FDA-Public Use
  Company Number: PHFR2005GB02273

PATIENT
  Age: 1 Year
  Sex: Male
  Weight: 10 kg

DRUGS (1)
  1. DICLOFENAC SODIUM [Suspect]
     Route: 064

REACTIONS (1)
  - TESTICULAR YOLK SAC TUMOUR STAGE I [None]
